FAERS Safety Report 12624058 (Version 3)
Quarter: 2016Q4

REPORT INFORMATION
  Report Type: Spontaneous
  Country: JP (occurrence: JP)
  Receive Date: 20160804
  Receipt Date: 20161010
  Transmission Date: 20170207
  Serious: Yes (Other)
  Sender: FDA-Public Use
  Company Number: JP-ROCHE-1808316

PATIENT
  Age: 72 Year
  Sex: Male

DRUGS (3)
  1. LUCENTIS [Suspect]
     Active Substance: RANIBIZUMAB
     Dosage: 0.05 ML, QD
     Route: 031
     Dates: start: 20150421, end: 20150421
  2. LUCENTIS [Suspect]
     Active Substance: RANIBIZUMAB
     Indication: AGE-RELATED MACULAR DEGENERATION
     Dosage: 0.05 ML, QD
     Route: 031
     Dates: start: 20150209
  3. LUCENTIS [Suspect]
     Active Substance: RANIBIZUMAB
     Dosage: 0.05 ML, QD
     Route: 031
     Dates: start: 20150325, end: 20150325

REACTIONS (5)
  - Subretinal fluid [Unknown]
  - Visual acuity reduced [Unknown]
  - Drug resistance [Unknown]
  - Age-related macular degeneration [Unknown]
  - Drug ineffective [Unknown]

NARRATIVE: CASE EVENT DATE: 20150422
